FAERS Safety Report 11446081 (Version 1)
Quarter: 2015Q3

REPORT INFORMATION
  Report Type: Spontaneous
  Country: US (occurrence: US)
  Receive Date: 20150831
  Receipt Date: 20150831
  Transmission Date: 20151125
  Serious: Yes (Hospitalization, Other)
  Sender: FDA-Public Use
  Company Number: US-ELI_LILLY_AND_COMPANY-US200809005328

PATIENT
  Sex: Female

DRUGS (5)
  1. NORFLEX [Concomitant]
     Active Substance: ORPHENADRINE CITRATE
     Indication: MYALGIA
     Dosage: 100 MG, 2/D
     Route: 048
  2. LYRICA [Interacting]
     Active Substance: PREGABALIN
     Indication: FIBROMYALGIA
     Dosage: 200 MG, DAILY (1/D)
     Route: 048
  3. TRAZODONE [Concomitant]
     Active Substance: TRAZODONE HYDROCHLORIDE
     Dosage: 25 MG, AS NEEDED
     Route: 048
  4. ULTRAM [Interacting]
     Active Substance: TRAMADOL HYDROCHLORIDE
     Indication: PAIN
     Dosage: 200 MG, DAILY (1/D)
     Route: 048
  5. CYMBALTA [Suspect]
     Active Substance: DULOXETINE HYDROCHLORIDE

REACTIONS (2)
  - Serotonin syndrome [Unknown]
  - Drug interaction [Unknown]
